FAERS Safety Report 6824040-8 (Version None)
Quarter: 2010Q3

REPORT INFORMATION
  Report Type: 
  Country: None (occurrence: None)
  Receive Date: 20100708
  Receipt Date: 20060929
  Transmission Date: 20110219
  Serious: No
  Sender: FDA-Public Use
  Company Number: US-PFIZER INC-2006120362

PATIENT
  Sex: Female
  Weight: 103.42 kg

DRUGS (14)
  1. CHANTIX [Suspect]
     Indication: SMOKING CESSATION THERAPY
     Dates: start: 20060928
  2. CLONIDINE [Concomitant]
  3. VALSARTAN [Concomitant]
  4. METOPROLOL [Concomitant]
  5. HYDROCHLOROTHIAZIDE [Concomitant]
  6. SKELAXIN [Concomitant]
  7. SOMA [Concomitant]
  8. LORTAB [Concomitant]
  9. TORADOL [Concomitant]
  10. TRAZODONE [Concomitant]
  11. LOVASTATIN [Concomitant]
  12. PHENTERMINE [Concomitant]
  13. PREVACID [Concomitant]
  14. ACETYLSALICYLIC ACID [Concomitant]

REACTIONS (2)
  - ABDOMINAL DISTENSION [None]
  - FLATULENCE [None]
